FAERS Safety Report 11767854 (Version 1)
Quarter: 2015Q4

REPORT INFORMATION
  Report Type: Spontaneous
  Country: IT (occurrence: IT)
  Receive Date: 20151123
  Receipt Date: 20151123
  Transmission Date: 20160304
  Serious: Yes (Hospitalization)
  Sender: FDA-Public Use
  Company Number: IT-ELI_LILLY_AND_COMPANY-IT201511004535

PATIENT
  Age: 52 Year
  Sex: Male
  Weight: 70 kg

DRUGS (2)
  1. HUMALOG [Suspect]
     Active Substance: INSULIN LISPRO
     Indication: TYPE 1 DIABETES MELLITUS
     Dosage: 75 IU, UNKNOWN
     Route: 042
     Dates: start: 20150101, end: 20150711
  2. LANTUS [Suspect]
     Active Substance: INSULIN GLARGINE
     Indication: TYPE 1 DIABETES MELLITUS
     Dosage: 20 IU, UNKNOWN
     Route: 042
     Dates: start: 20150101, end: 20150711

REACTIONS (4)
  - Fall [Recovered/Resolved]
  - Off label use [Unknown]
  - Thoracic vertebral fracture [Recovered/Resolved]
  - Hypoglycaemic coma [Recovered/Resolved]

NARRATIVE: CASE EVENT DATE: 20150711
